FAERS Safety Report 6757608-8 (Version None)
Quarter: 2010Q2

REPORT INFORMATION
  Report Type: 
  Country: None (occurrence: None)
  Receive Date: 20100607
  Receipt Date: 20100528
  Transmission Date: 20101027
  Serious: Yes (Disabling, Other)
  Sender: FDA-Public Use
  Company Number: NZ-WYE-G05041909

PATIENT
  Sex: Female

DRUGS (2)
  1. EFFEXOR XR [Suspect]
     Indication: ANXIETY
     Dosage: 3X75MG
     Dates: start: 20040101
  2. EFFEXOR XR [Suspect]
     Indication: DEPRESSION
     Dosage: 75MG DAILY
     Dates: end: 20100101

REACTIONS (13)
  - CONDITION AGGRAVATED [None]
  - DEPRESSION [None]
  - DISORIENTATION [None]
  - DRUG INEFFECTIVE [None]
  - DRUG WITHDRAWAL SYNDROME [None]
  - FEELING ABNORMAL [None]
  - INSOMNIA [None]
  - MALAISE [None]
  - SLEEP PHASE RHYTHM DISTURBANCE [None]
  - SUICIDAL IDEATION [None]
  - SUICIDE ATTEMPT [None]
  - UNEVALUABLE EVENT [None]
  - WEIGHT DECREASED [None]
